FAERS Safety Report 23359255 (Version 1)
Quarter: 2024Q1

REPORT INFORMATION
  Report Type: Spontaneous
  Country: CA (occurrence: CA)
  Receive Date: 20240102
  Receipt Date: 20240102
  Transmission Date: 20240410
  Serious: Yes (Other)
  Sender: FDA-Public Use
  Company Number: CA-BAYER-2023A185788

PATIENT
  Age: 91 Year
  Sex: Female

DRUGS (6)
  1. XARELTO [Suspect]
     Active Substance: RIVAROXABAN
     Indication: Atrial fibrillation
     Dosage: 15 MG, QD
     Route: 048
  2. AMLODIPINE [Concomitant]
     Active Substance: AMLODIPINE BESYLATE
     Dosage: 10 MG, QD
     Route: 048
  3. ATENOLOL [Concomitant]
     Active Substance: ATENOLOL
     Dosage: 25 MG, QD
     Route: 048
  4. ESCITALOPRAM [Concomitant]
     Active Substance: ESCITALOPRAM OXALATE
     Dosage: 5 MG, QD
     Route: 048
  5. ACETAMINOPHEN [Concomitant]
     Active Substance: ACETAMINOPHEN
     Dosage: 500 MG
     Route: 048
  6. FUROSEMIDE [Concomitant]
     Active Substance: FUROSEMIDE
     Dosage: 40 MG, QD

REACTIONS (9)
  - Mallory-Weiss syndrome [Recovered/Resolved]
  - Abdominal pain upper [Recovered/Resolved]
  - Haemoglobin abnormal [Recovered/Resolved]
  - Erosive oesophagitis [Recovered/Resolved]
  - Fatigue [Recovered/Resolved]
  - Dyspepsia [Recovered/Resolved]
  - Nausea [Recovered/Resolved]
  - Gastrooesophageal reflux disease [Recovered/Resolved]
  - Faeces discoloured [Recovered/Resolved]
